FAERS Safety Report 18079702 (Version 1)
Quarter: 2020Q3

REPORT INFORMATION
  Report Type: Spontaneous
  Country: US (occurrence: US)
  Receive Date: 20200728
  Receipt Date: 20200728
  Transmission Date: 20201103
  Serious: Yes (Hospitalization)
  Sender: FDA-Public Use
  Company Number: None

PATIENT
  Sex: Female

DRUGS (14)
  1. FASTCLIX MIS LANCETS [Concomitant]
  2. LISINOPRIL. [Concomitant]
     Active Substance: LISINOPRIL
  3. METFORMIN [Concomitant]
     Active Substance: METFORMIN HYDROCHLORIDE
  4. METRONIDAZOL [Concomitant]
     Active Substance: METRONIDAZOLE
  5. TURMERIC [Concomitant]
     Active Substance: HERBALS\TURMERIC
  6. COPAXONE [Concomitant]
     Active Substance: GLATIRAMER ACETATE
  7. CEPHALEXIN. [Concomitant]
     Active Substance: CEPHALEXIN
  8. ASPIRIN. [Concomitant]
     Active Substance: ASPIRIN
  9. GLATIRAMER 40MG/ML [Suspect]
     Active Substance: GLATIRAMER
     Indication: MULTIPLE SCLEROSIS
     Route: 058
     Dates: start: 201711
  10. SMZ/TMP DS TABLET [Concomitant]
     Active Substance: SULFAMETHOXAZOLE\TRIMETHOPRIM
  11. LANTUS SOLOS [Concomitant]
  12. ATORVASTATIN [Concomitant]
     Active Substance: ATORVASTATIN
  13. GLIPIZIDE. [Concomitant]
     Active Substance: GLIPIZIDE
  14. AMOX/K [Concomitant]

REACTIONS (2)
  - Staphylococcal infection [None]
  - Blood glucose increased [None]
